FAERS Safety Report 10518305 (Version 1)
Quarter: 2014Q4

REPORT INFORMATION
  Report Type: Spontaneous
  Country: US (occurrence: None)
  Receive Date: 20141014
  Receipt Date: 20141014
  Transmission Date: 20150528
  Serious: Yes (Other)
  Sender: FDA-Public Use
  Company Number: None

PATIENT
  Age: 63 Year
  Sex: Male
  Weight: 111.8 kg

DRUGS (1)
  1. ENOXAPARIN [Suspect]
     Active Substance: ENOXAPARIN
     Indication: CARDIAC VENTRICULAR THROMBOSIS
     Dosage: 110 MG BID SQ
     Route: 058
     Dates: start: 20131125

REACTIONS (3)
  - Injection site thrombosis [None]
  - Injection site induration [None]
  - Injection site haemorrhage [None]

NARRATIVE: CASE EVENT DATE: 20131205
